FAERS Safety Report 20548972 (Version 1)
Quarter: 2022Q1

REPORT INFORMATION
  Report Type: Spontaneous
  Country: US (occurrence: US)
  Receive Date: 20220303
  Receipt Date: 20220303
  Transmission Date: 20220423
  Serious: No
  Sender: FDA-Public Use
  Company Number: US-JNJFOC-20220250579

PATIENT
  Age: 17 Year
  Sex: Male

DRUGS (6)
  1. ZYRTEC [Suspect]
     Active Substance: CETIRIZINE HYDROCHLORIDE
     Indication: Sinusitis
     Route: 065
  2. PEPCID [Suspect]
     Active Substance: FAMOTIDINE
     Indication: Sinusitis
     Route: 065
  3. COVID-19 VACCINE [Concomitant]
     Indication: COVID-19 immunisation
     Route: 065
     Dates: start: 20210802, end: 20210802
  4. COVID-19 VACCINE [Concomitant]
     Route: 065
     Dates: start: 20210823, end: 20210823
  5. FLONASE [Concomitant]
     Active Substance: FLUTICASONE PROPIONATE
     Indication: Sinusitis
     Route: 065
  6. ALEGRA [Concomitant]
     Indication: Sinusitis
     Route: 065

REACTIONS (1)
  - Product use in unapproved indication [Unknown]
